FAERS Safety Report 7514659-3 (Version None)
Quarter: 2011Q2

REPORT INFORMATION
  Report Type: 
  Country: None (occurrence: None)
  Receive Date: 20110601
  Receipt Date: 20101227
  Transmission Date: 20111010
  Serious: Yes (Hospitalization, Other)
  Sender: FDA-Public Use
  Company Number: US-BAYER-201034827NA

PATIENT
  Age: 34 Year
  Sex: Female
  Weight: 58.957 kg

DRUGS (5)
  1. YASMIN [Suspect]
     Indication: ACNE
     Dosage: UNK
     Dates: start: 20060816, end: 20070727
  2. YASMIN [Suspect]
     Indication: PREMENSTRUAL SYNDROME
  3. DROSPIRENONE AND ETHINYL ESTRADIOL [Suspect]
     Indication: PRODUCT USED FOR UNKNOWN INDICATION
     Dosage: UNK
  4. YAZ [Suspect]
     Indication: ACNE
  5. PRILOSEC [Concomitant]
     Indication: PRODUCT USED FOR UNKNOWN INDICATION
     Dosage: UNK UNK, QD
     Route: 048

REACTIONS (11)
  - GALLBLADDER INJURY [None]
  - MALAISE [None]
  - ABNORMAL LOSS OF WEIGHT [None]
  - INJURY [None]
  - GALLBLADDER DISORDER [None]
  - RETCHING [None]
  - NAUSEA [None]
  - DECREASED APPETITE [None]
  - DYSPEPSIA [None]
  - STRESS [None]
  - BILIARY DYSKINESIA [None]
